FAERS Safety Report 11253350 (Version 1)
Quarter: 2015Q3

REPORT INFORMATION
  Report Type: Spontaneous
  Country: US (occurrence: US)
  Receive Date: 20150709
  Receipt Date: 20150709
  Transmission Date: 20151125
  Serious: No
  Sender: FDA-Public Use
  Company Number: US-TEVA-487559USA

PATIENT
  Sex: Female

DRUGS (2)
  1. HYDROXYZINE [Concomitant]
     Active Substance: HYDROXYZINE\HYDROXYZINE HYDROCHLORIDE
  2. TRAMADOL. [Suspect]
     Active Substance: TRAMADOL
     Indication: CYSTITIS INTERSTITIAL

REACTIONS (1)
  - Cystitis interstitial [Unknown]
